FAERS Safety Report 24774530 (Version 1)
Quarter: 2024Q4

REPORT INFORMATION
  Report Type: Spontaneous
  Country: KZ (occurrence: KZ)
  Receive Date: 20241225
  Receipt Date: 20241225
  Transmission Date: 20250114
  Serious: Yes (Other)
  Sender: HETERO
  Company Number: KZ-AMAROX PHARMA-HET2024KZ04971

PATIENT
  Sex: Female

DRUGS (1)
  1. EMTRICITABINE\TENOFOVIR DISOPROXIL FUMARATE [Suspect]
     Active Substance: EMTRICITABINE\TENOFOVIR DISOPROXIL FUMARATE
     Indication: Asymptomatic HIV infection
     Dosage: UNK
     Route: 065

REACTIONS (1)
  - Nephropathy toxic [Recovering/Resolving]
